FAERS Safety Report 9787669 (Version 2)
Quarter: 2013Q4

REPORT INFORMATION
  Report Type: Report from Study
  Country: CA (occurrence: CA)
  Receive Date: 20131230
  Receipt Date: 20131230
  Transmission Date: 20140711
  Serious: Yes (Hospitalization, Other)
  Sender: FDA-Public Use
  Company Number: CA-ROCHE-1268322

PATIENT
  Age: 70 Year
  Sex: Male
  Weight: 61 kg

DRUGS (22)
  1. ACTEMRA [Suspect]
     Indication: RHEUMATOID ARTHRITIS
     Route: 042
     Dates: start: 20130604
  2. ACTEMRA [Suspect]
     Route: 042
     Dates: start: 20130702
  3. ACTEMRA [Suspect]
     Route: 042
     Dates: start: 20130730
  4. ACTEMRA [Suspect]
     Route: 042
     Dates: start: 20130827, end: 20131029
  5. LOPRESSOR [Suspect]
     Indication: PRODUCT USED FOR UNKNOWN INDICATION
     Route: 048
  6. APO-PREDNISONE [Concomitant]
  7. TYLENOL [Concomitant]
  8. JAMP-CALCIUM [Concomitant]
  9. TRAMACET [Concomitant]
  10. ACTONEL [Concomitant]
  11. VOLTAREN [Concomitant]
  12. FENTANYL [Concomitant]
  13. IMODIUM [Concomitant]
  14. BOI K [Concomitant]
  15. BISOPROLOL [Concomitant]
  16. COUMADIN [Concomitant]
  17. PANTOLOC [Concomitant]
  18. SPIRIVA [Concomitant]
  19. TOPICORT (CANADA) [Concomitant]
  20. RHINARIS (CANADA) [Concomitant]
  21. LUMIGAN [Concomitant]
  22. FOLIC ACID [Concomitant]

REACTIONS (5)
  - Pneumonia [Recovered/Resolved]
  - Lung disorder [Unknown]
  - Hypotension [Unknown]
  - Rheumatoid arthritis [Not Recovered/Not Resolved]
  - Drug ineffective [Unknown]
